FAERS Safety Report 4284378-8 (Version None)
Quarter: 2004Q1

REPORT INFORMATION
  Report Type: 
  Country: None (occurrence: None)
  Receive Date: 20040130
  Receipt Date: 20040112
  Transmission Date: 20041129
  Serious: Yes (Hospitalization)
  Sender: FDA-Public Use
  Company Number: USA040156366

PATIENT
  Age: 92 Year
  Sex: Female
  Weight: 61 kg

DRUGS (3)
  1. ZYPREXA [Suspect]
     Indication: AGITATION
     Dosage: 5 MG/DAY
     Dates: start: 20031229, end: 20031230
  2. DIOVAN [Concomitant]
  3. DIGOXIN [Concomitant]

REACTIONS (2)
  - MOVEMENT DISORDER [None]
  - PYREXIA [None]
